FAERS Safety Report 6672677-1 (Version None)
Quarter: 2010Q2

REPORT INFORMATION
  Report Type: 
  Country: None (occurrence: None)
  Receive Date: 20100408
  Receipt Date: 20100329
  Transmission Date: 20101027
  Serious: Yes (Hospitalization)
  Sender: FDA-Public Use
  Company Number: CA-AMGEN-US360277

PATIENT
  Sex: Female
  Weight: 3.12 kg

DRUGS (5)
  1. ENBREL [Suspect]
     Indication: DRUG USE FOR UNKNOWN INDICATION
     Route: 064
     Dates: start: 20080920, end: 20081011
  2. VITAMIN TAB [Concomitant]
     Route: 064
  3. PERCOCET [Concomitant]
     Route: 064
     Dates: start: 20081029, end: 20090610
  4. PERCOCET [Concomitant]
     Dates: start: 20081017, end: 20081017
  5. PREDNISONE [Concomitant]
     Indication: SPONDYLOARTHROPATHY
     Route: 064
     Dates: start: 20090126, end: 20090610

REACTIONS (17)
  - ATRIAL SEPTAL DEFECT [None]
  - BRADYCARDIA NEONATAL [None]
  - GROUP B STREPTOCOCCUS NEONATAL SEPSIS [None]
  - LEUKOCYTOSIS [None]
  - LEUKOPENIA [None]
  - MENINGITIS NEONATAL [None]
  - NEONATAL HYPOTENSION [None]
  - NEONATAL RESPIRATORY DISTRESS SYNDROME [None]
  - NEONATAL RESPIRATORY FAILURE [None]
  - NEONATAL TACHYPNOEA [None]
  - NEUTROPENIA [None]
  - PATENT DUCTUS ARTERIOSUS [None]
  - PERSISTENT FOETAL CIRCULATION [None]
  - SEPTIC SHOCK [None]
  - SUBARACHNOID HAEMORRHAGE NEONATAL [None]
  - SUBDURAL HAEMORRHAGE NEONATAL [None]
  - TRANSFUSION [None]
